FAERS Safety Report 5266846-5 (Version None)
Quarter: 2007Q1

REPORT INFORMATION
  Report Type: 
  Country: None (occurrence: None)
  Receive Date: 20061213
  Receipt Date: 20020516
  Transmission Date: 20070707
  Serious: No
  Sender: FDA-Public Use
  Company Number: 2002UW07114

PATIENT
  Age: 70 Year
  Sex: Female
  Weight: 75.7507 kg

DRUGS (5)
  1. NOLVADEX [Suspect]
     Indication: BREAST CANCER
     Dosage: 20 MG QD PO
     Route: 048
     Dates: start: 19990503
  2. VERAPAMIL [Concomitant]
  3. LOTENSIN [Concomitant]
  4. NEURONTIN [Concomitant]
  5. EFFEXOR [Concomitant]

REACTIONS (1)
  - CATARACT [None]
